FAERS Safety Report 17377501 (Version 1)
Quarter: 2020Q1

REPORT INFORMATION
  Report Type: Spontaneous
  Country: SE (occurrence: SE)
  Receive Date: 20200206
  Receipt Date: 20200206
  Transmission Date: 20200409
  Serious: Yes (Death)
  Sender: FDA-Public Use
  Company Number: SE-009507513-2002SWE000655

PATIENT
  Age: 71 Year
  Sex: Male
  Weight: 85 kg

DRUGS (2)
  1. KEYTRUDA [Suspect]
     Active Substance: PEMBROLIZUMAB
     Indication: ADENOCARCINOMA
     Dosage: DOSE ONE. STRENGTH 25 MG/L; BATCH NUMBER REQUESTED
     Dates: start: 20191202, end: 20191202
  2. KEYTRUDA [Suspect]
     Active Substance: PEMBROLIZUMAB
     Dosage: DOSE TWO. STRENGTH 25 MG/L; BATCH NUMBER REQUESTED
     Dates: start: 20191223, end: 20191223

REACTIONS (9)
  - Confusional state [Fatal]
  - Muscle disorder [Fatal]
  - Areflexia [Fatal]
  - Visual impairment [Fatal]
  - Respiratory muscle weakness [Fatal]
  - Dyspnoea [Fatal]
  - Muscular weakness [Fatal]
  - Ophthalmoplegia [Fatal]
  - Bulbar palsy [Fatal]

NARRATIVE: CASE EVENT DATE: 201912
